FAERS Safety Report 18470205 (Version 1)
Quarter: 2020Q4

REPORT INFORMATION
  Report Type: Spontaneous
  Country: None (occurrence: US)
  Receive Date: 20201105
  Receipt Date: 20201105
  Transmission Date: 20210114
  Serious: Yes (Other)
  Sender: FDA-Public Use
  Company Number: US-VIFOR (INTERNATIONAL) INC.-VIT-2020-10554

PATIENT
  Age: 86 Year
  Sex: Male

DRUGS (1)
  1. VELTASSA [Suspect]
     Active Substance: PATIROMER
     Indication: HYPERKALAEMIA

REACTIONS (6)
  - Parathyroid disorder [Unknown]
  - Blood parathyroid hormone decreased [Unknown]
  - Acute kidney injury [Recovering/Resolving]
  - Metabolic acidosis [Unknown]
  - Hypomagnesaemia [Unknown]
  - Hypocalcaemia [Recovering/Resolving]
